FAERS Safety Report 7030134-7 (Version None)
Quarter: 2010Q4

REPORT INFORMATION
  Report Type: 
  Country: None (occurrence: None)
  Receive Date: 20101006
  Receipt Date: 20100930
  Transmission Date: 20110411
  Serious: Yes (Other)
  Sender: FDA-Public Use
  Company Number: JP-PFIZER INC-2010123945

PATIENT

DRUGS (1)
  1. ZYVOX [Suspect]
     Route: 048

REACTIONS (3)
  - CONVULSION [None]
  - HYPOKALAEMIA [None]
  - TREMOR [None]
